FAERS Safety Report 14454128 (Version 11)
Quarter: 2019Q2

REPORT INFORMATION
  Report Type: Report from Study
  Country: FR (occurrence: FR)
  Receive Date: 20180129
  Receipt Date: 20190410
  Transmission Date: 20190711
  Serious: Yes (Other)
  Sender: FDA-Public Use
  Company Number: FR-PFIZER INC-2018034208

PATIENT
  Age: 67 Year
  Sex: Male
  Weight: 73 kg

DRUGS (20)
  1. METHOTREXATE SODIUM. [Suspect]
     Active Substance: METHOTREXATE SODIUM
     Dosage: 7.5 MG, ONCE WEEKLY
     Route: 048
     Dates: start: 20110606, end: 20110711
  2. STELARA [Suspect]
     Active Substance: USTEKINUMAB
     Dosage: 45 MG, ONCE EVERY 12 WEEKS
     Route: 058
     Dates: start: 20110817, end: 20130318
  3. STELARA [Suspect]
     Active Substance: USTEKINUMAB
     Dosage: 45 MG, ONCE EVERY 12 WEEKS
     Route: 058
     Dates: start: 20130810, end: 201512
  4. LOCAPRED [Concomitant]
     Active Substance: DESONIDE
     Dosage: UNK
     Dates: start: 20161219
  5. METHOTREXATE SODIUM. [Suspect]
     Active Substance: METHOTREXATE SODIUM
     Dosage: 20 MG, ONCE WEEKLY
     Route: 048
     Dates: start: 20110321, end: 20110509
  6. FOLIC ACID. [Suspect]
     Active Substance: FOLIC ACID
     Indication: PSORIASIS
     Dosage: 5 MG, ONCE WEEKLY
     Route: 048
     Dates: start: 20160523, end: 20160718
  7. AUGMENTIN [Concomitant]
     Active Substance: AMOXICILLIN\CLAVULANATE POTASSIUM
     Dosage: UNK
     Dates: start: 20170127
  8. DESLORATADINE. [Concomitant]
     Active Substance: DESLORATADINE
     Dosage: UNK
     Dates: start: 20161219
  9. METHOTREXATE SODIUM. [Suspect]
     Active Substance: METHOTREXATE SODIUM
     Dosage: 7.5 MG, ONCE WEEKLY
     Route: 048
     Dates: start: 20160523, end: 20160718
  10. ENBREL [Suspect]
     Active Substance: ETANERCEPT
     Indication: PSORIASIS
     Dosage: 50 MG, TWICE WEEKLY
     Route: 058
     Dates: start: 20160425, end: 20161024
  11. METHOTREXATE SODIUM. [Suspect]
     Active Substance: METHOTREXATE SODIUM
     Indication: PSORIASIS
     Dosage: 15 MG, ONCE WEEKLY
     Route: 048
     Dates: start: 20100621, end: 20110321
  12. HUMIRA [Suspect]
     Active Substance: ADALIMUMAB
     Indication: PSORIASIS
     Dosage: 80 MG, ONCE WEEKLY
     Route: 058
     Dates: start: 20160201, end: 20160208
  13. HUMIRA [Suspect]
     Active Substance: ADALIMUMAB
     Dosage: 80 MG, EVERY 2 WEEKS
     Route: 058
     Dates: start: 20160208, end: 20160425
  14. COSENTYX [Suspect]
     Active Substance: SECUKINUMAB
     Indication: PSORIASIS
     Dosage: 300 MG, ONCE WEEKLY
     Route: 058
     Dates: start: 20161110, end: 201612
  15. DAIVOBET [Concomitant]
     Active Substance: BETAMETHASONE DIPROPIONATE\CALCIPOTRIENE
     Dosage: UNK
     Dates: start: 20160718
  16. FLIXOVATE [Concomitant]
     Active Substance: FLUTICASONE PROPIONATE
     Dosage: UNK
     Dates: start: 20160718, end: 20161110
  17. METHOTREXATE SODIUM. [Suspect]
     Active Substance: METHOTREXATE SODIUM
     Dosage: 10 MG, ONCE WEEKLY
     Route: 048
     Dates: start: 20110509, end: 20110606
  18. STELARA [Suspect]
     Active Substance: USTEKINUMAB
     Indication: PSORIASIS
     Dosage: 45 MG, ONCE EVERY 4 WEEKS
     Route: 058
     Dates: start: 20110719, end: 20110817
  19. STELARA [Suspect]
     Active Substance: USTEKINUMAB
     Dosage: 45 MG, ONCE EVERY 4 WEEKS
     Route: 058
     Dates: start: 20130708, end: 20130810
  20. FLIXOVATE [Concomitant]
     Active Substance: FLUTICASONE PROPIONATE
     Dosage: UNK
     Dates: start: 20161219

REACTIONS (1)
  - Adenocarcinoma of colon [Recovered/Resolved with Sequelae]

NARRATIVE: CASE EVENT DATE: 201712
